FAERS Safety Report 6445486-6 (Version None)
Quarter: 2009Q4

REPORT INFORMATION
  Report Type: 
  Country: None (occurrence: None)
  Receive Date: 20091118
  Receipt Date: 20090923
  Transmission Date: 20100525
  Serious: Yes (Other)
  Sender: FDA-Public Use
  Company Number: GB-PFIZER INC-2008045818

PATIENT
  Sex: Female

DRUGS (2)
  1. CHAMPIX [Suspect]
     Route: 048
     Dates: end: 20080103
  2. ETHINYL ESTRADIOL AND NORETHINDRONE [Suspect]
     Route: 048

REACTIONS (2)
  - DRUG INEFFECTIVE [None]
  - UNINTENDED PREGNANCY [None]
